FAERS Safety Report 6337760-9 (Version None)
Quarter: 2009Q3

REPORT INFORMATION
  Report Type: 
  Country: None (occurrence: None)
  Receive Date: 20090902
  Receipt Date: 20090825
  Transmission Date: 20100115
  Serious: Yes (Hospitalization)
  Sender: FDA-Public Use
  Company Number: US-JNJFOC-20081005151

PATIENT
  Sex: Male
  Weight: 70.7 kg

DRUGS (13)
  1. INFLIXIMAB [Suspect]
     Route: 042
  2. INFLIXIMAB [Suspect]
     Route: 042
  3. INFLIXIMAB [Suspect]
     Route: 042
  4. INFLIXIMAB [Suspect]
     Route: 042
  5. INFLIXIMAB [Suspect]
     Route: 042
  6. INFLIXIMAB [Suspect]
     Indication: INFLAMMATORY BOWEL DISEASE
     Route: 042
  7. FLAGYL [Suspect]
     Indication: CROHN'S DISEASE
  8. AZATHIOPRINE [Concomitant]
     Indication: INFLAMMATORY BOWEL DISEASE
     Route: 048
  9. PRILOSEC [Concomitant]
  10. ALBUTEROL [Concomitant]
     Route: 055
  11. 5-ASA [Concomitant]
     Indication: INFLAMMATORY BOWEL DISEASE
     Route: 048
  12. IRON SULFATETHIAMIN COMPOUND TAB [Concomitant]
     Route: 048
  13. ANTIHISTAMINES [Concomitant]

REACTIONS (2)
  - ENTEROCUTANEOUS FISTULA [None]
  - INTESTINAL STENOSIS [None]
